FAERS Safety Report 12593631 (Version 1)
Quarter: 2016Q3

REPORT INFORMATION
  Report Type: Spontaneous
  Country: PR (occurrence: PR)
  Receive Date: 20160726
  Receipt Date: 20160726
  Transmission Date: 20161109
  Serious: No
  Sender: FDA-Public Use
  Company Number: PR-ABBVIE-16P-131-1607030-00

PATIENT
  Sex: Female

DRUGS (1)
  1. SYNTHROID [Suspect]
     Active Substance: LEVOTHYROXINE SODIUM
     Indication: THYROID DISORDER
     Route: 048

REACTIONS (7)
  - Diabetes mellitus [Unknown]
  - Fall [Unknown]
  - Helicobacter infection [Unknown]
  - Anxiety [Unknown]
  - Neuropathy peripheral [Unknown]
  - Hypertension [Unknown]
  - Depression [Unknown]

NARRATIVE: CASE EVENT DATE: 201603
